FAERS Safety Report 10923995 (Version 2)
Quarter: 2015Q2

REPORT INFORMATION
  Report Type: Spontaneous
  Country: US (occurrence: US)
  Receive Date: 20150318
  Receipt Date: 20150526
  Transmission Date: 20150821
  Serious: Yes (Other)
  Sender: FDA-Public Use
  Company Number: US-JNJFOC-20130504884

PATIENT

DRUGS (2)
  1. PEMETREXED [Suspect]
     Active Substance: PEMETREXED
     Indication: NON-SMALL CELL LUNG CANCER
     Dosage: ON DAY 1 OF A 21-DAY CYCLE
     Route: 042
  2. ITRACONAZOLE. [Suspect]
     Active Substance: ITRACONAZOLE
     Indication: NON-SMALL CELL LUNG CANCER
     Dosage: STARTING ON DAY 1 OF CYCLE 1
     Route: 048

REACTIONS (2)
  - Neutropenia [Unknown]
  - Product use issue [Unknown]
